FAERS Safety Report 20299725 (Version 1)
Quarter: 2022Q1

REPORT INFORMATION
  Report Type: Report from Study
  Country: NL (occurrence: NL)
  Receive Date: 20220105
  Receipt Date: 20220105
  Transmission Date: 20220423
  Serious: Yes (Hospitalization)
  Sender: FDA-Public Use
  Company Number: NL-AstraZeneca-2021A909667

PATIENT
  Sex: Female
  Weight: 6 kg

DRUGS (1)
  1. SYNAGIS [Suspect]
     Active Substance: PALIVIZUMAB
     Indication: Gestational age test
     Route: 030
     Dates: start: 20210806

REACTIONS (1)
  - Viral upper respiratory tract infection [Not Recovered/Not Resolved]
